FAERS Safety Report 8459245-6 (Version None)
Quarter: 2012Q2

REPORT INFORMATION
  Report Type: 
  Country: None (occurrence: None)
  Receive Date: 20120618
  Receipt Date: 20120604
  Transmission Date: 20120825
  Serious: Yes (Other)
  Sender: FDA-Public Use
  Company Number: DSU-2012-04508

PATIENT
  Age: 72 Year
  Sex: Female
  Weight: 44.4525 kg

DRUGS (3)
  1. LISINOPRIL [Concomitant]
  2. EVOXAC [Suspect]
     Indication: SJOGREN'S SYNDROME
     Dosage: 60 MG (30 MG, BID), PER ORAL
     Route: 048
  3. CARTIA XT [Concomitant]

REACTIONS (11)
  - CHRONIC OBSTRUCTIVE PULMONARY DISEASE [None]
  - SCAR [None]
  - VOCAL CORD POLYP [None]
  - OSTEOPOROSIS [None]
  - GASTROOESOPHAGEAL REFLUX DISEASE [None]
  - CHILLS [None]
  - PROCEDURAL HAEMORRHAGE [None]
  - PHARYNGEAL HAEMORRHAGE [None]
  - FATIGUE [None]
  - HYPERHIDROSIS [None]
  - APHASIA [None]
